FAERS Safety Report 17295750 (Version 1)
Quarter: 2020Q1

REPORT INFORMATION
  Report Type: Report from Study
  Country: US (occurrence: US)
  Receive Date: 20200121
  Receipt Date: 20200121
  Transmission Date: 20200409
  Serious: Yes (Other)
  Sender: FDA-Public Use
  Company Number: US-JNJFOC-20190836881

PATIENT
  Sex: Female

DRUGS (17)
  1. PENTASA [Concomitant]
     Active Substance: MESALAMINE
     Indication: CROHN^S DISEASE
     Dosage: 8 TABLETS
  2. ALPRAZOLAM. [Concomitant]
     Active Substance: ALPRAZOLAM
     Indication: ANXIETY
  3. VC [Concomitant]
     Active Substance: ASCORBIC ACID
     Dosage: 1000
  4. VITAMIN D3 [Concomitant]
     Active Substance: CHOLECALCIFEROL
  5. VITAMIN B12 [Concomitant]
     Active Substance: CYANOCOBALAMIN
     Dosage: 2000MCG
  6. THIAMINE HYDROCHLORIDE. [Concomitant]
     Active Substance: THIAMINE HYDROCHLORIDE
  7. ACETAMINOPHEN. [Concomitant]
     Active Substance: ACETAMINOPHEN
  8. METRONIDAZOLE. [Concomitant]
     Active Substance: METRONIDAZOLE
     Route: 061
  9. MULTIVITAMINS                      /00116001/ [Concomitant]
     Active Substance: VITAMINS
  10. ZINC. [Concomitant]
     Active Substance: ZINC
  11. STELARA [Suspect]
     Active Substance: USTEKINUMAB
     Indication: CROHN^S DISEASE
     Route: 058
     Dates: start: 20181108
  12. PERMETHRIN. [Concomitant]
     Active Substance: PERMETHRIN
  13. PHILLIPS^ COLON HEALTH PROBIOTIC + FIBER [Concomitant]
  14. CALTRATE 600+D [Concomitant]
  15. EQUATE                             /00002701/ [Concomitant]
     Dosage: MENOPAUSE SUPPORT
  16. DOXYCYCLINE HYCLATE. [Concomitant]
     Active Substance: DOXYCYCLINE HYCLATE
  17. B6 [Concomitant]
     Active Substance: PYRIDOXINE HYDROCHLORIDE

REACTIONS (4)
  - Fistula discharge [Unknown]
  - Stress [Unknown]
  - Perirectal abscess [Recovering/Resolving]
  - Crohn^s disease [Recovering/Resolving]
